FAERS Safety Report 13298196 (Version 1)
Quarter: 2017Q1

REPORT INFORMATION
  Report Type: Spontaneous
  Country: CA (occurrence: CA)
  Receive Date: 20170306
  Receipt Date: 20170306
  Transmission Date: 20170428
  Serious: Yes (Other)
  Sender: FDA-Public Use
  Company Number: CA-GLENMARK PHARMACEUTICALS-2017GMK026566

PATIENT
  Age: 36 Year
  Sex: Male
  Weight: 55 kg

DRUGS (7)
  1. AMIKACIN [Suspect]
     Active Substance: AMIKACIN
     Indication: MYCOBACTERIUM ABSCESSUS INFECTION
     Dosage: 275 MG, QD
     Route: 042
  2. AMIKACIN [Suspect]
     Active Substance: AMIKACIN
     Dosage: 825 MG, Q24 HOURS, 15MG/KG
     Route: 042
  3. SULFAMETHOXAZOLE/TRIMETHOPRIM [Suspect]
     Active Substance: SULFAMETHOXAZOLE\TRIMETHOPRIM
     Indication: MYCOBACTERIUM ABSCESSUS INFECTION
     Dosage: DOUBLE STRENGTH BID
     Route: 048
  4. AMIKACIN [Suspect]
     Active Substance: AMIKACIN
     Dosage: 900 MG, Q24 HOURS, 15MG/KG
     Route: 042
  5. CLARITHROMYCIN. [Suspect]
     Active Substance: CLARITHROMYCIN
     Indication: MYCOBACTERIUM ABSCESSUS INFECTION
     Dosage: 500 MG, BID
     Route: 042
  6. AMIKACIN [Suspect]
     Active Substance: AMIKACIN
     Dosage: 300 MG, Q8HOURS
     Route: 042
  7. CEFOXITIN [Suspect]
     Active Substance: CEFOXITIN SODIUM
     Indication: MYCOBACTERIUM ABSCESSUS INFECTION
     Dosage: 2 G, Q4HOURS
     Route: 042

REACTIONS (3)
  - Nephropathy toxic [Recovered/Resolved]
  - Neuropathy peripheral [Recovered/Resolved]
  - Renal injury [Recovered/Resolved]
